FAERS Safety Report 7482192-3 (Version None)
Quarter: 2011Q2

REPORT INFORMATION
  Report Type: 
  Country: None (occurrence: None)
  Receive Date: 20110516
  Receipt Date: 20110510
  Transmission Date: 20111010
  Serious: No
  Sender: FDA-Public Use
  Company Number: US-PFIZER INC-2011099910

PATIENT
  Sex: Male
  Weight: 78.912 kg

DRUGS (7)
  1. MELOXICAM [Concomitant]
     Dosage: 15 MG, UNK
  2. ATENOLOL [Concomitant]
     Dosage: 25 MG, UNK
  3. SUTENT [Suspect]
     Dosage: 37.5 MG (1-25MG AND 1-12.5MG) ONCE DAILY
     Route: 048
  4. SERTRALINE [Concomitant]
     Dosage: 50 MG, UNK
  5. AMLODIPINE [Concomitant]
     Dosage: 10 MG, UNK
  6. AMITRIPTYLINE [Concomitant]
     Dosage: 25 MG, UNK
  7. ACETYLSALICYLIC ACID [Concomitant]
     Dosage: 81 MG, UNK

REACTIONS (3)
  - DIARRHOEA [None]
  - SKIN EXFOLIATION [None]
  - EYE DISORDER [None]
